FAERS Safety Report 5848963-1 (Version None)
Quarter: 2008Q3

REPORT INFORMATION
  Report Type: 
  Country: None (occurrence: None)
  Receive Date: 20080819
  Receipt Date: 20080812
  Transmission Date: 20090109
  Serious: Yes (Life-Threatening)
  Sender: FDA-Public Use
  Company Number: PHHY2008JP17795

PATIENT
  Age: 58 Year
  Sex: Male

DRUGS (2)
  1. GLEEVEC [Suspect]
     Indication: GASTROINTESTINAL STROMAL TUMOUR
     Dosage: 400 MG/DAY
     Route: 048
     Dates: start: 20080718, end: 20080725
  2. GLEEVEC [Suspect]
     Indication: METASTASES TO LIVER

REACTIONS (3)
  - DISSEMINATED INTRAVASCULAR COAGULATION [None]
  - SMALL INTESTINAL HAEMORRHAGE [None]
  - TUMOUR LYSIS SYNDROME [None]
